FAERS Safety Report 7238699-7 (Version None)
Quarter: 2011Q1

REPORT INFORMATION
  Report Type: 
  Country: None (occurrence: None)
  Receive Date: 20110121
  Receipt Date: 20110120
  Transmission Date: 20110831
  Serious: No
  Sender: FDA-Public Use
  Company Number: CN-JNJFOC-20110103813

PATIENT
  Age: 26 Year
  Sex: Male

DRUGS (3)
  1. CHLORIMIPRAMINE [Suspect]
     Indication: SCHIZOPHRENIA
     Route: 065
  2. CHINESE MEDICATION [Suspect]
     Indication: SCHIZOPHRENIA
     Route: 065
  3. RISPERDAL [Suspect]
     Indication: SCHIZOPHRENIA
     Route: 048

REACTIONS (1)
  - SEXUAL DYSFUNCTION [None]
